FAERS Safety Report 8908260 (Version 1)
Quarter: 2012Q4

REPORT INFORMATION
  Report Type: 
  Country: US (occurrence: US)
  Receive Date: 20121114
  Receipt Date: 20121114
  Transmission Date: 20130627
  Serious: No
  Sender: FDA-Public Use
  Company Number: PHEH2012US022313

PATIENT
  Sex: Male

DRUGS (2)
  1. TASIGNA [Suspect]
     Indication: CHRONIC MYELOID LEUKAEMIA
     Dosage: 300 mg, QD
     Route: 048
  2. TASIGNA [Suspect]
     Dosage: 600 mg, QD
     Route: 048

REACTIONS (2)
  - Incorrect dose administered [Unknown]
  - White blood cell count decreased [Unknown]
